FAERS Safety Report 18522862 (Version 3)
Quarter: 2020Q4

REPORT INFORMATION
  Report Type: Spontaneous
  Country: FR (occurrence: FR)
  Receive Date: 20201119
  Receipt Date: 20201210
  Transmission Date: 20210114
  Serious: Yes (Death, Other)
  Sender: FDA-Public Use
  Company Number: FR-PFIZER INC-2020454328

PATIENT
  Age: 60 Year
  Sex: Female
  Weight: 136 kg

DRUGS (4)
  1. TRIFLUCAN [Suspect]
     Active Substance: FLUCONAZOLE
     Dosage: 400 MG, 1X/DAY
     Route: 048
  2. ZELITREX [Suspect]
     Active Substance: VALACYCLOVIR HYDROCHLORIDE
     Indication: INFECTION PROPHYLAXIS
     Dosage: 500 MG, 1X/DAY
     Route: 048
     Dates: end: 20170330
  3. CORDARONE [Interacting]
     Active Substance: AMIODARONE HYDROCHLORIDE
     Indication: MYOCARDIAL ISCHAEMIA
     Dosage: 200 MG, 1X/DAY
  4. SANDIMMUN [Suspect]
     Active Substance: CYCLOSPORINE
     Indication: GRAFT VERSUS HOST DISEASE
     Dosage: 400 MG, (FREQ:24 H)
     Route: 041
     Dates: start: 20170328, end: 20170330

REACTIONS (3)
  - Drug interaction [Unknown]
  - Acute kidney injury [Recovering/Resolving]
  - Septic shock [Fatal]

NARRATIVE: CASE EVENT DATE: 20170330
